FAERS Safety Report 8520668-8 (Version None)
Quarter: 2012Q3

REPORT INFORMATION
  Report Type: 
  Country: None (occurrence: None)
  Receive Date: 20120719
  Receipt Date: 20120712
  Transmission Date: 20120928
  Serious: Yes (Other)
  Sender: FDA-Public Use
  Company Number: DE-PFIZER INC-2012159937

PATIENT
  Age: 69 Year
  Sex: Male
  Weight: 90 kg

DRUGS (4)
  1. LYRICA [Suspect]
     Indication: NEURALGIA
     Dosage: 300 MG, PER DAY
     Dates: start: 20110101
  2. NEBIVOLOL [Concomitant]
     Dosage: 5 MG, 1X/DAY
     Dates: start: 20120101
  3. VALDOXAN [Concomitant]
     Dosage: 25 MG, 1X/DAY
     Dates: start: 20110101
  4. CITALOPRAM [Concomitant]
     Dosage: 20 MG, 1X/DAY
     Dates: start: 20110101

REACTIONS (3)
  - DIZZINESS [None]
  - MALAISE [None]
  - ATRIAL FLUTTER [None]
